FAERS Safety Report 8446135-8 (Version None)
Quarter: 2012Q2

REPORT INFORMATION
  Report Type: 
  Country: None (occurrence: None)
  Receive Date: 20120618
  Receipt Date: 20120613
  Transmission Date: 20120825
  Serious: Yes (Death)
  Sender: FDA-Public Use
  Company Number: US-CELGENEUS-163-21880-12062093

PATIENT
  Sex: Female

DRUGS (4)
  1. COUMADIN [Concomitant]
     Dosage: 2 MILLIGRAM
     Route: 048
  2. NEXIUM [Concomitant]
     Dosage: 20 MILLIGRAM
     Route: 048
  3. REVLIMID [Suspect]
     Indication: MULTIPLE MYELOMA
     Dosage: 5 MILLIGRAM
     Route: 048
     Dates: start: 20080501, end: 20120101
  4. MEGACE ES [Concomitant]
     Route: 048

REACTIONS (1)
  - DEATH [None]
